FAERS Safety Report 6753611-2 (Version None)
Quarter: 2010Q2

REPORT INFORMATION
  Report Type: 
  Country: None (occurrence: None)
  Receive Date: 20100603
  Receipt Date: 20100528
  Transmission Date: 20101027
  Serious: Yes (Hospitalization)
  Sender: FDA-Public Use
  Company Number: JP-ROCHE-676735

PATIENT
  Sex: Male

DRUGS (9)
  1. TOCILIZUMAB [Suspect]
     Indication: RHEUMATOID ARTHRITIS
     Dosage: FORM: INJECTION
     Route: 041
     Dates: start: 20091021, end: 20091021
  2. TOCILIZUMAB [Suspect]
     Route: 041
     Dates: start: 20091118, end: 20091118
  3. TOCILIZUMAB [Suspect]
     Route: 041
     Dates: start: 20100305, end: 20100305
  4. TOCILIZUMAB [Suspect]
     Route: 041
     Dates: start: 20100331
  5. METHOTREXATE [Concomitant]
     Route: 048
  6. FOLIAMIN [Concomitant]
     Route: 048
  7. CLARITH [Concomitant]
     Route: 048
  8. LIMAPROST ALFADEX [Concomitant]
     Route: 048
  9. ALVESCO [Concomitant]
     Dosage: ROUTE: RESPIRATORY (INHALATION), FORM: RESPIRATORY TONIC
     Route: 055

REACTIONS (1)
  - HAEMATOCHEZIA [None]
